FAERS Safety Report 17422207 (Version 1)
Quarter: 2020Q1

REPORT INFORMATION
  Report Type: Other
  Country: ES (occurrence: ES)
  Receive Date: 20200214
  Receipt Date: 20200214
  Transmission Date: 20200409
  Serious: Yes (Death)
  Sender: FDA-Public Use
  Company Number: ES-TEIKOKU PHARMA USA-TPU2020-00077

PATIENT
  Age: 50 Year
  Sex: Female

DRUGS (5)
  1. MAGNESIUM [Suspect]
     Active Substance: MAGNESIUM
     Indication: CARDIO-RESPIRATORY ARREST
     Route: 065
  2. VERAPAMIL [Concomitant]
     Active Substance: VERAPAMIL HYDROCHLORIDE
  3. AMIODARONE [Suspect]
     Active Substance: AMIODARONE
     Indication: CARDIO-RESPIRATORY ARREST
     Route: 065
  4. LIDOCAINE. [Suspect]
     Active Substance: LIDOCAINE
     Indication: CARDIO-RESPIRATORY ARREST
     Route: 065
  5. ADRENALINE [Suspect]
     Active Substance: EPINEPHRINE
     Indication: CARDIO-RESPIRATORY ARREST
     Route: 065

REACTIONS (2)
  - Drug ineffective [Fatal]
  - Death [Fatal]
